FAERS Safety Report 5517542-8 (Version None)
Quarter: 2007Q4

REPORT INFORMATION
  Report Type: 
  Country: None (occurrence: None)
  Receive Date: 20071114
  Receipt Date: 20071107
  Transmission Date: 20080405
  Serious: Yes (Hospitalization)
  Sender: FDA-Public Use
  Company Number: US-SHR-US-2007-010530

PATIENT
  Sex: Male

DRUGS (1)
  1. BETASERON [Suspect]
     Route: 058

REACTIONS (1)
  - GAIT DISTURBANCE [None]
